FAERS Safety Report 9532203 (Version 1)
Quarter: 2013Q3

REPORT INFORMATION
  Report Type: Spontaneous
  Country: US (occurrence: US)
  Receive Date: 20130918
  Receipt Date: 20130918
  Transmission Date: 20140515
  Serious: Yes (Death)
  Sender: FDA-Public Use
  Company Number: US-ELI_LILLY_AND_COMPANY-US201309003992

PATIENT
  Sex: Female

DRUGS (2)
  1. INSULIN HUMAN [Suspect]
     Indication: DIABETES MELLITUS
     Dosage: UNK
  2. HUMULIN NPH [Suspect]
     Dosage: UNK

REACTIONS (3)
  - Complications of transplanted kidney [Fatal]
  - Complications of transplanted pancreas [Fatal]
  - Diabetic complication [Fatal]
